FAERS Safety Report 9785740 (Version 5)
Quarter: 2014Q1

REPORT INFORMATION
  Report Type: Spontaneous
  Country: JP (occurrence: JP)
  Receive Date: 20131227
  Receipt Date: 20140115
  Transmission Date: 20141002
  Serious: Yes (Death, Hospitalization)
  Sender: FDA-Public Use
  Company Number: JP-OTSUKA-JP-2013-15531

PATIENT
  Age: 93 Year
  Sex: Male

DRUGS (12)
  1. SAMSCA [Suspect]
     Indication: HEPATIC CIRRHOSIS
     Dosage: 3.75 MG MILLIGRAM(S), QAM
     Route: 048
     Dates: start: 20131107, end: 20131115
  2. SAMSCA [Suspect]
     Indication: ASCITES
  3. VESICARE [Concomitant]
     Dosage: 2.5 MG MILLIGRAM(S), HS
     Route: 048
     Dates: end: 20131121
  4. EBRANTIL [Concomitant]
     Dosage: 30 MG MILLIGRAM(S), AFTER BREAKFAST AND DINNER
     Route: 048
     Dates: end: 20131121
  5. FUROSEMIDE [Concomitant]
     Dosage: 60 MG MILLIGRAM(S), 40 MG AFTER BREAKFAST AND 20 MG AFTER LUNCH
     Route: 048
     Dates: start: 20130130, end: 20131117
  6. FUROSEMIDE [Concomitant]
     Dosage: 20 MG MILLIGRAM(S), DAILY DOSE
     Route: 048
     Dates: start: 20131118, end: 20131120
  7. ALDACTONE A [Concomitant]
     Dosage: 50 MG MILLIGRAM(S), BID
     Route: 048
     Dates: start: 20130130, end: 20131121
  8. DIART [Concomitant]
     Dosage: 30 MG MILLIGRAM(S), QAM
     Route: 048
     Dates: start: 20130703, end: 20131120
  9. ASPARA POTASSIUM [Concomitant]
     Dosage: 600 MG MILLIGRAM(S), AFTER BREAKFAST AND LUNCH
     Route: 048
     Dates: start: 20130731, end: 20131121
  10. LIVACT [Concomitant]
     Dosage: 60 G GRAM(S), AFTER EACH MEALS
     Route: 048
     Dates: start: 20131002, end: 20131121
  11. BASEN [Concomitant]
     Dosage: 0.6 MG MILLIGRAM(S), DAILY DOSE, BEFORE EACH MEAL
     Route: 048
     Dates: end: 20131121
  12. TAKEPRON [Concomitant]
     Dosage: 15 MG MILLIGRAM(S), QAM, BEFORE BREAKFAST
     Route: 048
     Dates: end: 20131121

REACTIONS (2)
  - Hypernatraemia [Fatal]
  - Blood creatinine increased [Unknown]
